FAERS Safety Report 10162117 (Version 2)
Quarter: 2014Q2

REPORT INFORMATION
  Report Type: Spontaneous
  Country: US (occurrence: US)
  Receive Date: 20140509
  Receipt Date: 20140513
  Transmission Date: 20141212
  Serious: No
  Sender: FDA-Public Use
  Company Number: US-TEVA-479516USA

PATIENT
  Age: 58 Year
  Sex: Male
  Weight: 97.16 kg

DRUGS (4)
  1. NUVIGIL [Suspect]
     Indication: SLEEP APNOEA SYNDROME
     Dates: start: 201305
  2. NUVIGIL [Suspect]
     Indication: CIRCADIAN RHYTHM SLEEP DISORDER
  3. NUVIGIL [Suspect]
     Indication: POOR QUALITY SLEEP
  4. ASPIRIN [Concomitant]

REACTIONS (3)
  - Drug effect decreased [Unknown]
  - Sleep disorder [Unknown]
  - Hypersomnia [Unknown]
